FAERS Safety Report 5102066-2 (Version None)
Quarter: 2006Q3

REPORT INFORMATION
  Report Type: 
  Country: None (occurrence: None)
  Receive Date: 20060908
  Receipt Date: 20060818
  Transmission Date: 20061208
  Serious: Yes (Other)
  Sender: FDA-Public Use
  Company Number: US200608004274

PATIENT
  Age: 59 Year
  Sex: Female

DRUGS (2)
  1. CYMBALTA [Suspect]
     Indication: DEPRESSION
     Dosage: 30 MG
     Dates: start: 20060601
  2. LOVASTATIN [Concomitant]

REACTIONS (7)
  - CONTUSION [None]
  - EYE DISORDER [None]
  - HEADACHE [None]
  - RETINAL DETACHMENT [None]
  - RETINAL TEAR [None]
  - VISUAL ACUITY REDUCED [None]
  - VISUAL DISTURBANCE [None]
